FAERS Safety Report 12201308 (Version 1)
Quarter: 2016Q1

REPORT INFORMATION
  Report Type: Spontaneous
  Country: US (occurrence: US)
  Receive Date: 20160322
  Receipt Date: 20160322
  Transmission Date: 20160526
  Serious: No
  Sender: FDA-Public Use
  Company Number: US-SA-2015SA048121

PATIENT
  Age: 64 Year
  Sex: Female

DRUGS (2)
  1. NASACORT ALLERGY 24HR [Suspect]
     Active Substance: TRIAMCINOLONE ACETONIDE
     Indication: MULTIPLE ALLERGIES
     Dosage: TAKEN FROM- 12 DAYS AGO.?DOSE- 2 SPRAYS PER NOSTRIL.
     Route: 045
     Dates: end: 20150412
  2. CLARITIN [Suspect]
     Active Substance: LORATADINE
     Route: 065

REACTIONS (2)
  - Feeling abnormal [Unknown]
  - Drug ineffective [Unknown]
